FAERS Safety Report 6246109-1 (Version None)
Quarter: 2009Q2

REPORT INFORMATION
  Report Type: 
  Country: None (occurrence: None)
  Receive Date: 20090626
  Receipt Date: 20090326
  Transmission Date: 20091009
  Serious: No
  Sender: FDA-Public Use
  Company Number: A0772349A

PATIENT
  Age: 47 Year
  Sex: Female

DRUGS (7)
  1. IMITREX [Suspect]
     Indication: MIGRAINE
     Dosage: 200MG TWICE PER DAY
     Route: 048
     Dates: start: 20090222
  2. PHENTANYL [Concomitant]
  3. OXYCODONE HCL [Concomitant]
  4. TRAZODONE HCL [Concomitant]
  5. SOMA [Concomitant]
  6. NAPROXEN [Concomitant]
  7. IBUPROFEN [Concomitant]

REACTIONS (5)
  - ACCIDENTAL OVERDOSE [None]
  - DIZZINESS [None]
  - DRUG DISPENSING ERROR [None]
  - NAUSEA [None]
  - OVERDOSE [None]
